FAERS Safety Report 9039548 (Version 1)
Quarter: 2013Q1

REPORT INFORMATION
  Report Type: Spontaneous
  Country: US (occurrence: None)
  Receive Date: 20130123
  Receipt Date: 20130123
  Transmission Date: 20140127
  Serious: Yes (Death)
  Sender: FDA-Public Use
  Company Number: None

PATIENT
  Age: 55 Year
  Sex: Female
  Weight: 97.4 kg

DRUGS (18)
  1. ERLOTINIB [Suspect]
     Indication: NON-SMALL CELL LUNG CANCER
     Route: 048
     Dates: start: 20120808, end: 20121214
  2. VANCOMYCIN [Concomitant]
  3. CEFEPIME [Concomitant]
  4. LEVOFLOXACIN [Concomitant]
  5. MAG SULFATE [Concomitant]
  6. ATORVASTATIN [Concomitant]
  7. ZOLPIDEM [Concomitant]
  8. OXYCONTIN [Concomitant]
  9. DECADRON [Concomitant]
  10. GABAPENTIN [Concomitant]
  11. MAGNESIUM GLUCONATE [Concomitant]
  12. SERTRALINE [Concomitant]
  13. KCL [Concomitant]
  14. SENNOSIDES [Concomitant]
  15. OMEPRAZOLE [Concomitant]
  16. PHENEZOPYRIDINE [Concomitant]
  17. GUAIFENESIN AC [Concomitant]
  18. DILAUDID [Concomitant]

REACTIONS (4)
  - Non-small cell lung cancer [None]
  - Back pain [None]
  - Dyspnoea [None]
  - Bone disorder [None]
